FAERS Safety Report 16995153 (Version 2)
Quarter: 2019Q4

REPORT INFORMATION
  Report Type: Report from Study
  Country: None (occurrence: US)
  Receive Date: 20191105
  Receipt Date: 20191112
  Transmission Date: 20200122
  Serious: Yes (Hospitalization)
  Sender: FDA-Public Use
  Company Number: US-ABBVIE-19K-163-2988373-00

PATIENT
  Sex: Male

DRUGS (2)
  1. RITUXAN [Suspect]
     Active Substance: RITUXIMAB
     Indication: PRODUCT USED FOR UNKNOWN INDICATION
     Dosage: RITUXAN 10 MG/ML(10ML) VIAL
     Route: 065
  2. VENCLEXTA [Suspect]
     Active Substance: VENETOCLAX
     Indication: B-CELL LYMPHOMA
     Dosage: TAKES 4 TABLET BY MOUTH EVERY DAY WITH MEAL AND WATER AT APPROXIMATELY SAME TIME EACH DAY.
     Route: 048

REACTIONS (5)
  - Fall [Unknown]
  - Spinal fracture [Unknown]
  - Dizziness [Unknown]
  - Drug hypersensitivity [Unknown]
  - Constipation [Unknown]
